FAERS Safety Report 13097057 (Version 1)
Quarter: 2017Q1

REPORT INFORMATION
  Report Type: Spontaneous
  Country: US (occurrence: US)
  Receive Date: 20170109
  Receipt Date: 20170109
  Transmission Date: 20170428
  Serious: No
  Sender: FDA-Public Use
  Company Number: US-PFIZER INC-2017007347

PATIENT
  Age: 60 Year
  Sex: Female

DRUGS (6)
  1. REMICADE [Suspect]
     Active Substance: INFLIXIMAB
     Dosage: UNK
  2. DOXEPIN HCL [Suspect]
     Active Substance: DOXEPIN HYDROCHLORIDE
     Dosage: UNK
  3. AMITRIPTYLINE [Suspect]
     Active Substance: AMITRIPTYLINE
     Dosage: UNK
  4. MEPERIDINE HCL [Suspect]
     Active Substance: MEPERIDINE HYDROCHLORIDE
     Dosage: UNK
  5. SAVELLA [Suspect]
     Active Substance: MILNACIPRAN HYDROCHLORIDE
     Dosage: UNK
  6. ENBREL [Suspect]
     Active Substance: ETANERCEPT
     Dosage: UNK

REACTIONS (1)
  - Drug hypersensitivity [Unknown]
